FAERS Safety Report 8720549 (Version 3)
Quarter: 2012Q4

REPORT INFORMATION
  Report Type: 
  Country: CR (occurrence: CR)
  Receive Date: 20120813
  Receipt Date: 20121012
  Transmission Date: 20130627
  Serious: Yes (Hospitalization, Other)
  Sender: FDA-Public Use
  Company Number: CR-ROCHE-1099185

PATIENT
  Age: 62 Year
  Sex: Female

DRUGS (6)
  1. BONVIVA [Suspect]
     Indication: OSTEOPENIA
     Route: 048
     Dates: start: 20070508
  2. AMLODIPINE [Concomitant]
     Indication: HYPERTENSION
  3. APROVEL [Concomitant]
     Indication: HYPERTENSION
  4. LEVOTIROX [Concomitant]
     Indication: THYROID DISORDER
  5. ATORVASTATIN [Concomitant]
     Indication: DYSLIPIDAEMIA
  6. IMIPRAMINE [Concomitant]
     Indication: FIBROMYALGIA

REACTIONS (3)
  - Upper limb fracture [Recovered/Resolved]
  - Cellulitis [Recovered/Resolved]
  - Ecchymosis [Recovered/Resolved]
